FAERS Safety Report 6237463-5 (Version None)
Quarter: 2009Q2

REPORT INFORMATION
  Report Type: 
  Country: None (occurrence: None)
  Receive Date: 20090619
  Receipt Date: 20090609
  Transmission Date: 20091009
  Serious: Yes (Other)
  Sender: FDA-Public Use
  Company Number: GB-AMGEN-US351186

PATIENT
  Sex: Female
  Weight: 52 kg

DRUGS (3)
  1. ENBREL [Suspect]
     Indication: RHEUMATOID ARTHRITIS
     Dosage: 50 MG EVERY 1 TOT
     Route: 058
     Dates: start: 20090527, end: 20090527
  2. FOLIC ACID [Concomitant]
     Route: 065
  3. METHOTREXATE [Concomitant]
     Route: 065

REACTIONS (6)
  - DYSPNOEA [None]
  - EYE SWELLING [None]
  - OEDEMA MOUTH [None]
  - OEDEMA PERIPHERAL [None]
  - PHARYNGEAL OEDEMA [None]
  - RASH GENERALISED [None]
